FAERS Safety Report 8106373 (Version 2)
Quarter: 2013Q2

REPORT INFORMATION
  Report Type: Spontaneous
  Country: US (occurrence: US)
  Receive Date: 20110825
  Receipt Date: 20130412
  Transmission Date: 20140414
  Serious: Yes (Other)
  Sender: FDA-Public Use
  Company Number: US-BAYER-2011-075345

PATIENT
  Age: 44 Year
  Sex: Female
  Weight: 95.69 kg

DRUGS (14)
  1. YAZ [Suspect]
  2. YASMIN [Suspect]
  3. OXYCODONE/APAP [Concomitant]
     Dosage: 5-325
     Route: 048
     Dates: start: 20090403
  4. CYCLOBENZAPRINE [Concomitant]
     Dosage: UNK
     Route: 048
     Dates: start: 20090415
  5. SYNTHROID [Concomitant]
     Dosage: UNK
     Route: 048
     Dates: start: 20090421
  6. HYDROMORPHONE [Concomitant]
     Dosage: UNK
     Route: 048
     Dates: start: 20090429
  7. SOMA [Concomitant]
     Dosage: UNK
     Route: 048
     Dates: start: 20090429
  8. TOPIRAMATE [Concomitant]
     Dosage: UNK
     Route: 048
     Dates: start: 20090506
  9. TIZANIDINE HYDROCHLORIDE [Concomitant]
     Dosage: UNK
     Route: 048
     Dates: start: 20090506
  10. CLONAZEPAM [Concomitant]
     Dosage: UNK
     Route: 048
     Dates: start: 20090515
  11. PRISTIQ [Concomitant]
     Dosage: UNK
     Route: 048
     Dates: start: 20090526
  12. KLONOPIN [Concomitant]
  13. FLEXERIL [Concomitant]
  14. BACTRIM [Concomitant]
     Indication: URINARY TRACT INFECTION

REACTIONS (4)
  - Pulmonary embolism [None]
  - Injury [None]
  - Pulmonary embolism [None]
  - Deep vein thrombosis [Recovered/Resolved]
